FAERS Safety Report 5788771-3 (Version None)
Quarter: 2008Q2

REPORT INFORMATION
  Report Type: 
  Country: None (occurrence: None)
  Receive Date: 20080626
  Receipt Date: 20080619
  Transmission Date: 20081010
  Serious: Yes (Other)
  Sender: FDA-Public Use
  Company Number: GB-WATSON-2008-02794

PATIENT
  Age: 33 Year
  Sex: Male

DRUGS (1)
  1. ANDROPATCH (ANDRODERM) [Suspect]
     Indication: DRUG USE FOR UNKNOWN INDICATION
     Dosage: 5 MG, UNKNOWN
     Route: 065
     Dates: start: 20050101

REACTIONS (1)
  - DRUG DEPENDENCE [None]
